FAERS Safety Report 10530531 (Version 1)
Quarter: 2014Q4

REPORT INFORMATION
  Report Type: Spontaneous
  Country: ES (occurrence: ES)
  Receive Date: 20141021
  Receipt Date: 20141021
  Transmission Date: 20150528
  Serious: Yes (Life-Threatening, Hospitalization)
  Sender: FDA-Public Use
  Company Number: ES-SA-2014SA142697

PATIENT
  Age: 78 Year
  Sex: Male

DRUGS (2)
  1. CALCIUM CHANNEL BLOCKERS [Concomitant]
     Active Substance: UNSPECIFIED INGREDIENT
     Route: 048
  2. FLUDARABINE PHOSPHATE. [Suspect]
     Active Substance: FLUDARABINE PHOSPHATE
     Indication: CHRONIC LYMPHOCYTIC LEUKAEMIA
     Route: 048

REACTIONS (17)
  - C-reactive protein increased [Recovered/Resolved]
  - Haematuria [Recovered/Resolved]
  - Blood uric acid increased [Recovered/Resolved]
  - Blood calcium decreased [Recovered/Resolved]
  - Acute kidney injury [Recovered/Resolved]
  - Beta 2 microglobulin increased [Recovered/Resolved]
  - Urine output decreased [Recovered/Resolved]
  - Blood potassium increased [Recovered/Resolved]
  - Blood creatinine increased [Recovered/Resolved]
  - Blood bicarbonate decreased [Recovered/Resolved]
  - Proteinuria [Recovered/Resolved]
  - Blood phosphorus increased [Recovered/Resolved]
  - Electrocardiogram PR prolongation [Unknown]
  - Tumour lysis syndrome [Recovering/Resolving]
  - Fluid intake reduced [Recovered/Resolved]
  - Blood urea increased [Recovered/Resolved]
  - Blood lactate dehydrogenase increased [Recovered/Resolved]
